FAERS Safety Report 5652226-7 (Version None)
Quarter: 2008Q1

REPORT INFORMATION
  Report Type: 
  Country: None (occurrence: None)
  Receive Date: 20080304
  Receipt Date: 20080227
  Transmission Date: 20080703
  Serious: Yes (Hospitalization)
  Sender: FDA-Public Use
  Company Number: 2008SP004173

PATIENT
  Age: 79 Year
  Sex: Male

DRUGS (2)
  1. PEG-INTRON [Suspect]
     Indication: HEPATITIS C
     Dosage: 40 MCG QW SC
     Route: 058
     Dates: start: 20071012, end: 20080201
  2. REBETOL [Suspect]
     Indication: HEPATITIS C
     Dosage: 200 MG QD PO
     Route: 048
     Dates: start: 20071012, end: 20080207

REACTIONS (2)
  - CELLULITIS [None]
  - NECROTISING FASCIITIS [None]
